FAERS Safety Report 7769969-1 (Version None)
Quarter: 2011Q3

REPORT INFORMATION
  Report Type: 
  Country: None (occurrence: None)
  Receive Date: 20110922
  Receipt Date: 20110914
  Transmission Date: 20111222
  Serious: Yes (Hospitalization)
  Sender: FDA-Public Use
  Company Number: JP-GLAXOSMITHKLINE-B0747915A

PATIENT
  Sex: Male
  Weight: 68 kg

DRUGS (7)
  1. ACTOS [Concomitant]
     Dosage: 1MG PER DAY
     Route: 048
  2. SPIRIVA [Concomitant]
     Indication: EMPHYSEMA
     Dosage: 18MCG PER DAY
     Route: 055
     Dates: start: 20100811, end: 20110323
  3. TAMSULOSIN HYDROCHLORIDE [Concomitant]
     Dosage: .2MG PER DAY
     Route: 048
  4. MIGLITOL [Concomitant]
     Dosage: 150MG PER DAY
     Route: 048
  5. FLUTICASONE PROPIONATE/SALMETEROL [Suspect]
     Indication: EMPHYSEMA
     Dosage: 500MCG PER DAY
     Route: 055
     Dates: start: 20100811, end: 20110323
  6. BUFORMIN [Concomitant]
     Dosage: 150MG PER DAY
     Route: 048
  7. AMARYL [Concomitant]
     Dosage: 4MG PER DAY
     Route: 048

REACTIONS (2)
  - ANAEMIA [None]
  - UPPER GASTROINTESTINAL HAEMORRHAGE [None]
